FAERS Safety Report 4319490-8 (Version None)
Quarter: 2004Q1

REPORT INFORMATION
  Report Type: 
  Country: None (occurrence: None)
  Receive Date: 20040318
  Receipt Date: 20040318
  Transmission Date: 20041129
  Serious: Yes (Life-Threatening, Hospitalization, Disabling, Other)
  Sender: FDA-Public Use
  Company Number: None

PATIENT
  Age: 40 Year
  Sex: Male
  Weight: 93.441 kg

DRUGS (2)
  1. ZOLOFT [Suspect]
     Indication: DEPRESSION
     Dosage: 200 MG ONCE DAILY BUCCAL
     Route: 002
     Dates: start: 20030601, end: 20040218
  2. GEODON [Suspect]
     Indication: PSYCHOTIC DISORDER
     Dosage: EGODON ONCE DAILY BUCCAL
     Route: 002
     Dates: start: 20031110, end: 20040218

REACTIONS (13)
  - AGGRESSION [None]
  - AGITATION [None]
  - ASTHENIA [None]
  - CONFUSIONAL STATE [None]
  - DEPRESSION [None]
  - DISTURBANCE IN ATTENTION [None]
  - HYPERVENTILATION [None]
  - LEGAL PROBLEM [None]
  - MOTOR DYSFUNCTION [None]
  - PARAESTHESIA [None]
  - ROAD TRAFFIC ACCIDENT [None]
  - SUICIDAL IDEATION [None]
  - TREMOR [None]
